FAERS Safety Report 17736641 (Version 2)
Quarter: 2020Q3

REPORT INFORMATION
  Report Type: Report from Study
  Country: US (occurrence: US)
  Receive Date: 20200501
  Receipt Date: 20200922
  Transmission Date: 20201104
  Serious: Yes (Life-Threatening, Hospitalization, Other)
  Sender: FDA-Public Use
  Company Number: NVSC2020US117300

PATIENT
  Age: 24 Year
  Sex: Female
  Weight: 65.3 kg

DRUGS (5)
  1. PEMBROLIZUMAB. [Suspect]
     Active Substance: PEMBROLIZUMAB
     Indication: OROPHARYNGEAL SQUAMOUS CELL CARCINOMA
     Route: 042
  2. PROLEUKIN [Suspect]
     Active Substance: ALDESLEUKIN
     Indication: OROPHARYNGEAL SQUAMOUS CELL CARCINOMA
     Route: 042
  3. CYCLOPHOSPHAMIDE. [Suspect]
     Active Substance: CYCLOPHOSPHAMIDE
     Indication: OROPHARYNGEAL SQUAMOUS CELL CARCINOMA
     Route: 065
  4. ETOPOSID [Concomitant]
     Active Substance: ETOPOSIDE
     Indication: PRODUCT USED FOR UNKNOWN INDICATION
     Dosage: UNK
     Route: 055
  5. FLUDARABINE PHOSPHATE. [Suspect]
     Active Substance: FLUDARABINE PHOSPHATE
     Indication: OROPHARYNGEAL SQUAMOUS CELL CARCINOMA
     Route: 042

REACTIONS (2)
  - Cytokine release syndrome [Recovering/Resolving]
  - Haemophagocytic lymphohistiocytosis [Recovering/Resolving]

NARRATIVE: CASE EVENT DATE: 20190817
